FAERS Safety Report 10484531 (Version 1)
Quarter: 2014Q3

REPORT INFORMATION
  Report Type: Spontaneous
  Country: US (occurrence: US)
  Receive Date: 20140930
  Receipt Date: 20140930
  Transmission Date: 20150326
  Serious: Yes (Other)
  Sender: FDA-Public Use
  Company Number: US-PFIZER INC-2014265895

PATIENT
  Age: 49 Year
  Sex: Female
  Weight: 99.77 kg

DRUGS (5)
  1. XANAX [Concomitant]
     Active Substance: ALPRAZOLAM
     Dosage: UNK
  2. ZOLOFT [Concomitant]
     Active Substance: SERTRALINE HYDROCHLORIDE
     Dosage: UNK
  3. LYRICA [Suspect]
     Active Substance: PREGABALIN
     Indication: FIBROMYALGIA
     Dosage: 1500 MG (300MG CAPSULE, DIVIDED AS 1 CAPSULE IN MORNING, 2 CAPSULES IN AFTERNOON, 2 AT NIGHT), UNK
     Route: 048
  4. ABILIFY [Concomitant]
     Active Substance: ARIPIPRAZOLE
     Dosage: UNK
  5. GEODON [Concomitant]
     Active Substance: ZIPRASIDONE HYDROCHLORIDE\ZIPRASIDONE MESYLATE
     Dosage: UNK

REACTIONS (7)
  - Dysphagia [Not Recovered/Not Resolved]
  - Intentional product misuse [Unknown]
  - Pharyngeal oedema [Not Recovered/Not Resolved]
  - Cyanosis [Not Recovered/Not Resolved]
  - Drug hypersensitivity [Not Recovered/Not Resolved]
  - Lip swelling [Not Recovered/Not Resolved]
  - Dyspnoea [Not Recovered/Not Resolved]
